FAERS Safety Report 21740272 (Version 5)
Quarter: 2024Q1

REPORT INFORMATION
  Report Type: Report from Study
  Country: US (occurrence: US)
  Receive Date: 20221216
  Receipt Date: 20240304
  Transmission Date: 20240409
  Serious: Yes (Life-Threatening, Hospitalization, Other)
  Sender: FDA-Public Use
  Company Number: US-ARGENX-2022-ARGX-US002700

PATIENT

DRUGS (19)
  1. VYVGART [Suspect]
     Active Substance: EFGARTIGIMOD ALFA-FCAB
     Indication: Myasthenia gravis
     Dosage: 800 MG, 1/WEEK
     Route: 042
     Dates: start: 202204
  2. PREDNISONE [Concomitant]
     Active Substance: PREDNISONE
     Indication: Myasthenia gravis
     Dosage: 3 MG, DAILY
     Route: 048
     Dates: start: 202302
  3. PREDNISONE [Concomitant]
     Active Substance: PREDNISONE
     Dosage: 30 MG, DAILY
     Route: 065
  4. PREDNISONE [Concomitant]
     Active Substance: PREDNISONE
     Dosage: 20 MG, DAILY, 3 TABS PEG TUBE ONCE A DAY
     Route: 048
  5. PREDNISONE [Concomitant]
     Active Substance: PREDNISONE
     Dosage: UNK, TAPER DOWN
     Route: 065
     Dates: start: 202302
  6. PREDNISONE [Concomitant]
     Active Substance: PREDNISONE
     Dosage: 50 MG, DAILY,
     Route: 048
  7. MESTINON [Concomitant]
     Active Substance: PYRIDOSTIGMINE BROMIDE
     Indication: Myasthenia gravis
     Dosage: 5 ML, QID, 60 MG/5 ML ORAL SYRUP) 5 ML PEG TUBE FOUR TIMES A DAY
     Route: 048
  8. MESTINON [Concomitant]
     Active Substance: PYRIDOSTIGMINE BROMIDE
     Indication: Gastrooesophageal reflux disease
  9. AZATHIOPRINE [Concomitant]
     Active Substance: AZATHIOPRINE
     Indication: Myasthenia gravis
     Route: 065
  10. MYCOPHENOLIC ACID [Concomitant]
     Active Substance: MYCOPHENOLIC ACID
     Indication: Myasthenia gravis
     Route: 065
  11. FUROSEMIDE [Concomitant]
     Active Substance: FUROSEMIDE
     Indication: Product used for unknown indication
     Dosage: 40 MG, DAILY
     Route: 048
  12. FUROSEMIDE [Concomitant]
     Active Substance: FUROSEMIDE
     Dosage: 4 ML, DAILY, (10 MG/ML ORAL LIQUID) 4 ML DUO TUBE BEFORE LUNCH
     Route: 048
  13. FUROSEMIDE [Concomitant]
     Active Substance: FUROSEMIDE
     Dosage: 20 MG, EVERY OTHER DAY
     Route: 048
  14. FUROSEMIDE [Concomitant]
     Active Substance: FUROSEMIDE
     Dosage: 20 MG, EVERY OTHER DAY
     Route: 048
  15. GLIPIZIDE XL [Concomitant]
     Active Substance: GLIPIZIDE
     Indication: Product used for unknown indication
     Dosage: 2.5 MG, DAILY, WITH BREAKFAST
     Route: 048
  16. GLIPIZIDE XL [Concomitant]
     Active Substance: GLIPIZIDE
     Dosage: 5 MG, BID, 0.5 TABS PEG TUBE
     Route: 048
  17. PANTOPRAZOLE [Concomitant]
     Active Substance: PANTOPRAZOLE
     Indication: Product used for unknown indication
     Dosage: 40 MG, DELAYED RELEASE TABLET
     Route: 048
  18. POTASSIUM CHLORIDE [Concomitant]
     Active Substance: POTASSIUM CHLORIDE
     Indication: Product used for unknown indication
     Dosage: 20 MEQ, 1 PACKET BID
     Route: 048
  19. SOLIRIS [Concomitant]
     Active Substance: ECULIZUMAB
     Indication: Product used for unknown indication
     Dosage: 1200 MG, 2/WEEK
     Route: 065

REACTIONS (24)
  - Anaphylactic reaction [Recovered/Resolved]
  - Mechanical ventilation [Unknown]
  - Malaise [Unknown]
  - Dysphagia [Unknown]
  - Speech disorder [Unknown]
  - Thyroid cancer [Unknown]
  - Myasthenia gravis crisis [Recovered/Resolved]
  - Myasthenia gravis crisis [Unknown]
  - Pneumonia aspiration [Unknown]
  - Hypervolaemia [Unknown]
  - Acute respiratory failure [Unknown]
  - Restrictive pulmonary disease [Unknown]
  - Neuromyopathy [Unknown]
  - Dysphagia [Unknown]
  - Gastrostomy [Recovered/Resolved]
  - Nausea [Unknown]
  - Abdominal distension [Unknown]
  - Oedema peripheral [Unknown]
  - Diarrhoea [Unknown]
  - Leukocytosis [Recovered/Resolved]
  - Malaise [Recovering/Resolving]
  - Oedema peripheral [Unknown]
  - Vision blurred [Unknown]
  - Lacrimation increased [Unknown]

NARRATIVE: CASE EVENT DATE: 20221001
